FAERS Safety Report 19686442 (Version 1)
Quarter: 2021Q3

REPORT INFORMATION
  Report Type: Spontaneous
  Country: IN (occurrence: IN)
  Receive Date: 20210811
  Receipt Date: 20210811
  Transmission Date: 20211014
  Serious: Yes (Hospitalization)
  Sender: FDA-Public Use
  Company Number: IN-MYLANLABS-2021M1049523

PATIENT
  Age: 67 Year
  Sex: Male

DRUGS (6)
  1. AMIODARONE [Suspect]
     Active Substance: AMIODARONE
     Dosage: FOR 6 HOURS
     Route: 042
  2. AMIODARONE [Suspect]
     Active Substance: AMIODARONE
     Indication: VENTRICULAR TACHYCARDIA
     Dosage: OVER 10 MINUTES
     Route: 042
  3. AMIODARONE [Suspect]
     Active Substance: AMIODARONE
     Dosage: FOR 18 HOURS
     Route: 042
  4. MAGNESIUM SULFATE. [Suspect]
     Active Substance: MAGNESIUM SULFATE
     Indication: VENTRICULAR TACHYCARDIA
     Dosage: 2 GRAM
  5. METOPROLOL. [Suspect]
     Active Substance: METOPROLOL
     Indication: VENTRICULAR TACHYCARDIA
     Dosage: 5 MILLIGRAM
     Route: 065
  6. LIGNOCAINE                         /00033401/ [Concomitant]
     Active Substance: LIDOCAINE HYDROCHLORIDE
     Indication: VENTRICULAR TACHYCARDIA
     Dosage: 100 MILLIGRAM
     Route: 065

REACTIONS (1)
  - Drug ineffective [Unknown]
